FAERS Safety Report 8226792-1 (Version None)
Quarter: 2012Q1

REPORT INFORMATION
  Report Type: 
  Country: None (occurrence: None)
  Receive Date: 20120322
  Receipt Date: 20120314
  Transmission Date: 20120608
  Serious: Yes (Hospitalization)
  Sender: FDA-Public Use
  Company Number: US-BAYER-201031475NA

PATIENT
  Age: 38 Year
  Sex: Female
  Weight: 78.912 kg

DRUGS (4)
  1. PERCOCET [Concomitant]
  2. VALIUM [Concomitant]
  3. YASMIN [Suspect]
     Indication: CONTRACEPTION
     Dosage: UNK
     Route: 048
     Dates: start: 20030401, end: 20051229
  4. MOTRIN [Concomitant]
     Route: 048

REACTIONS (1)
  - DEEP VEIN THROMBOSIS [None]
